FAERS Safety Report 15204891 (Version 3)
Quarter: 2018Q3

REPORT INFORMATION
  Report Type: Report from Study
  Country: US (occurrence: US)
  Receive Date: 20180726
  Receipt Date: 20180827
  Transmission Date: 20181010
  Serious: No
  Sender: FDA-Public Use
  Company Number: PHEH2018US030939

PATIENT
  Age: 13 Year
  Sex: Male

DRUGS (1)
  1. OMNITROPE [Suspect]
     Active Substance: SOMATROPIN
     Indication: HYPOPITUITARISM
     Dosage: 10 MG, QD
     Route: 058
     Dates: start: 20180719

REACTIONS (3)
  - Constipation [Unknown]
  - Pain [Unknown]
  - Overdose [Unknown]

NARRATIVE: CASE EVENT DATE: 20180719
